FAERS Safety Report 6088760-8 (Version None)
Quarter: 2009Q1

REPORT INFORMATION
  Report Type: 
  Country: None (occurrence: None)
  Receive Date: 20090219
  Receipt Date: 20090210
  Transmission Date: 20090719
  Serious: Yes (Hospitalization, Congenital Anomaly, Other)
  Sender: FDA-Public Use
  Company Number: 2006AL002790

PATIENT
  Age: 29 Year
  Sex: Female

DRUGS (2)
  1. FLUOXETINE [Suspect]
     Indication: POSTPARTUM DEPRESSION
     Dosage: 40 MG; QD
     Dates: start: 20030701, end: 20060131
  2. FOLIC ACID [Concomitant]

REACTIONS (3)
  - ABORTION SPONTANEOUS [None]
  - DRUG EXPOSURE DURING PREGNANCY [None]
  - PREGNANCY [None]
